FAERS Safety Report 19761602 (Version 1)
Quarter: 2021Q3

REPORT INFORMATION
  Report Type: Spontaneous
  Country: US (occurrence: US)
  Receive Date: 20210828
  Receipt Date: 20210828
  Transmission Date: 20211014
  Serious: Yes (Death)
  Sender: FDA-Public Use
  Company Number: None

PATIENT
  Age: 66 Year
  Sex: Male
  Weight: 85.5 kg

DRUGS (4)
  1. KALETRA [Concomitant]
     Active Substance: LOPINAVIR\RITONAVIR
  2. ZIAGEN [Concomitant]
     Active Substance: ABACAVIR SULFATE
  3. KALETRA [Suspect]
     Active Substance: LOPINAVIR\RITONAVIR
  4. EPIVIR [Suspect]
     Active Substance: LAMIVUDINE

REACTIONS (1)
  - Death [None]

NARRATIVE: CASE EVENT DATE: 20210816
